FAERS Safety Report 10882305 (Version 4)
Quarter: 2015Q2

REPORT INFORMATION
  Report Type: Spontaneous
  Country: US (occurrence: US)
  Receive Date: 20150303
  Receipt Date: 20150505
  Transmission Date: 20150821
  Serious: Yes (Other)
  Sender: FDA-Public Use
  Company Number: US-UNITED THERAPEUTICS-UNT-2015-000691

PATIENT
  Age: 43 Year
  Sex: Female
  Weight: 71.66 kg

DRUGS (6)
  1. LETAIRIS [Concomitant]
     Active Substance: AMBRISENTAN
     Indication: PRODUCT USED FOR UNKNOWN INDICATION
  2. REMODULIN [Suspect]
     Active Substance: TREPROSTINIL
     Dosage: 0.024 ?G/KG, CONTINUING
     Route: 058
  3. REMODULIN [Suspect]
     Active Substance: TREPROSTINIL
     Indication: PULMONARY ARTERIAL HYPERTENSION
     Dosage: 0.024 ?G/KG, CONTINUING
     Route: 058
     Dates: start: 20140513
  4. REMODULIN [Suspect]
     Active Substance: TREPROSTINIL
     Dosage: 0.030 ?G/KG, CONTINUING
     Route: 058
     Dates: start: 20140620
  5. ADCIRCA [Concomitant]
     Active Substance: TADALAFIL
     Indication: PRODUCT USED FOR UNKNOWN INDICATION
  6. REMODULIN [Suspect]
     Active Substance: TREPROSTINIL
     Dosage: 0.024 ?G/KG, CONTINUING
     Route: 058
     Dates: start: 20140618

REACTIONS (13)
  - Diarrhoea [Unknown]
  - Chest pain [Recovered/Resolved]
  - Pain [Unknown]
  - Breast mass [Unknown]
  - Infusion site oedema [Unknown]
  - Infusion site erythema [Unknown]
  - Injection site discharge [Unknown]
  - Infusion site cellulitis [Unknown]
  - Device issue [Unknown]
  - Myalgia [Unknown]
  - Arthralgia [Unknown]
  - Abdominal infection [Unknown]
  - Drug dose omission [Unknown]

NARRATIVE: CASE EVENT DATE: 201502
